FAERS Safety Report 6786347-2 (Version None)
Quarter: 2010Q2

REPORT INFORMATION
  Report Type: 
  Country: None (occurrence: None)
  Receive Date: 20100623
  Receipt Date: 20100609
  Transmission Date: 20101027
  Serious: Yes (Hospitalization, Other)
  Sender: FDA-Public Use
  Company Number: PHHY2010US30021

PATIENT
  Sex: Male
  Weight: 67.12 kg

DRUGS (1)
  1. EXJADE [Suspect]
     Indication: SICKLE CELL ANAEMIA
     Dosage: 1250 MG, QD
     Route: 048
     Dates: start: 20100118, end: 20100319

REACTIONS (2)
  - PNEUMONIA [None]
  - SICKLE CELL ANAEMIA WITH CRISIS [None]
